FAERS Safety Report 9975244 (Version 1)
Quarter: 2014Q1

REPORT INFORMATION
  Report Type: Report from Study
  Country: US (occurrence: US)
  Receive Date: 20140306
  Receipt Date: 20140306
  Transmission Date: 20141002
  Serious: No
  Sender: FDA-Public Use
  Company Number: US-ABBVIE-13P-163-1158165-00

PATIENT
  Age: 62 Year
  Sex: Female

DRUGS (10)
  1. HUMIRA [Suspect]
     Indication: AUTOIMMUNE DISORDER
     Dates: start: 20130912
  2. PREDNISONE [Concomitant]
     Indication: AUTOIMMUNE DISORDER
  3. PREDNISONE [Concomitant]
  4. LEVOTHYROXINE [Concomitant]
     Indication: HYPOTHYROIDISM
  5. ZOLOFT [Concomitant]
     Indication: DEPRESSION
  6. LORTAB [Concomitant]
     Indication: PAIN
     Dosage: 7.5/500 MG
  7. TRAMADOL [Concomitant]
     Indication: PAIN
  8. MULTIVITAMIN [Concomitant]
     Indication: VITAMIN SUPPLEMENTATION
  9. B 12 [Concomitant]
     Indication: VITAMIN SUPPLEMENTATION
     Dosage: DAILY
  10. VITAMIN C [Concomitant]
     Indication: VITAMIN SUPPLEMENTATION
     Dosage: DAILY

REACTIONS (7)
  - Injection site bruising [Recovering/Resolving]
  - Mobility decreased [Not Recovered/Not Resolved]
  - Injection site urticaria [Recovering/Resolving]
  - Pain [Not Recovered/Not Resolved]
  - Drug ineffective [Not Recovered/Not Resolved]
  - Injection site erythema [Recovering/Resolving]
  - Injection site swelling [Recovering/Resolving]
